FAERS Safety Report 11303213 (Version 1)
Quarter: 2015Q3

REPORT INFORMATION
  Report Type: Report from Study
  Country: US (occurrence: US)
  Receive Date: 20150723
  Receipt Date: 20150723
  Transmission Date: 20151125
  Serious: Yes (Hospitalization, Other)
  Sender: FDA-Public Use
  Company Number: PHEH2015US013823

PATIENT
  Age: 42 Year
  Sex: Female
  Weight: 90.7 kg

DRUGS (10)
  1. EXJADE [Suspect]
     Active Substance: DEFERASIROX
     Indication: PRODUCT USED FOR UNKNOWN INDICATION
     Dosage: 2500 MG, QD
     Route: 048
     Dates: start: 20150102
  2. HIDROXIUREA [Concomitant]
     Active Substance: HYDROXYUREA
     Indication: PRODUCT USED FOR UNKNOWN INDICATION
     Dosage: 500 MG, BID
     Route: 048
     Dates: start: 20140616
  3. TOPIRAMATE. [Concomitant]
     Active Substance: TOPIRAMATE
     Indication: PRODUCT USED FOR UNKNOWN INDICATION
     Dosage: 25 MG, BID 2 TABS
     Route: 048
     Dates: start: 20120104
  4. FOLIC ACID. [Concomitant]
     Active Substance: FOLIC ACID
     Indication: PRODUCT USED FOR UNKNOWN INDICATION
     Dosage: 1 MG, QD
     Route: 048
     Dates: start: 20120104
  5. HYDROMORPHONE [Concomitant]
     Active Substance: HYDROMORPHONE
     Indication: BREAKTHROUGH PAIN
     Dosage: 4 MG, TID, PRN
     Route: 048
     Dates: start: 20120104
  6. VITAMIN D3 [Concomitant]
     Active Substance: CHOLECALCIFEROL
     Indication: PRODUCT USED FOR UNKNOWN INDICATION
     Dosage: 1000 U, QD
     Route: 048
  7. DIPHENHYDRAMINE HCL [Concomitant]
     Active Substance: DIPHENHYDRAMINE HYDROCHLORIDE
     Indication: PRODUCT USED FOR UNKNOWN INDICATION
     Dosage: 2 DF, PRN
     Route: 048
  8. METHADONE [Concomitant]
     Active Substance: METHADONE HYDROCHLORIDE
     Dosage: 10 MG, Q8H
     Route: 048
  9. BUTALBITAL W/ASPIRIN,CAFFEINE [Concomitant]
     Active Substance: ASPIRIN\BUTALBITAL\CAFFEINE
     Indication: MIGRAINE
     Dosage: 1 DF, UNK
     Route: 048
     Dates: start: 20120104
  10. METHADONE [Concomitant]
     Active Substance: METHADONE HYDROCHLORIDE
     Indication: PRODUCT USED FOR UNKNOWN INDICATION
     Dosage: 20 MG, TID
     Route: 048
     Dates: start: 20120104

REACTIONS (11)
  - Sickle cell anaemia with crisis [Recovered/Resolved]
  - Venoocclusive disease [Recovered/Resolved]
  - Cough [Recovering/Resolving]
  - Chest discomfort [Recovering/Resolving]
  - Chronic kidney disease [Recovering/Resolving]
  - Headache [Recovering/Resolving]
  - Anaemia [Recovered/Resolved]
  - Pain [Recovered/Resolved]
  - Chills [Recovering/Resolving]
  - Pyrexia [Recovering/Resolving]
  - Pneumonia [Recovering/Resolving]

NARRATIVE: CASE EVENT DATE: 20150605
